FAERS Safety Report 10550282 (Version 2)
Quarter: 2014Q4

REPORT INFORMATION
  Report Type: Spontaneous
  Country: US (occurrence: US)
  Receive Date: 20141029
  Receipt Date: 20141128
  Transmission Date: 20150529
  Serious: Yes (Other)
  Sender: FDA-Public Use
  Company Number: US-ROCHE-1479391

PATIENT
  Sex: Female

DRUGS (6)
  1. RITUXAN [Suspect]
     Active Substance: RITUXIMAB
     Indication: SYSTEMIC LUPUS ERYTHEMATOSUS
     Route: 065
     Dates: start: 2012, end: 201208
  2. RITUXAN [Suspect]
     Active Substance: RITUXIMAB
     Indication: PANCYTOPENIA
  3. CELLCEPT [Suspect]
     Active Substance: MYCOPHENOLATE MOFETIL\MYCOPHENOLATE MOFETIL HYDROCHLORIDE
     Indication: PRODUCT USED FOR UNKNOWN INDICATION
     Route: 065
     Dates: end: 201208
  4. AZATHIOPRINE. [Concomitant]
     Active Substance: AZATHIOPRINE
     Route: 065
     Dates: start: 2008, end: 201208
  5. METHOTREXATE [Concomitant]
     Active Substance: METHOTREXATE
     Route: 065
     Dates: start: 2008, end: 2010
  6. PREDNISONE. [Concomitant]
     Active Substance: PREDNISONE
     Route: 065
     Dates: end: 201208

REACTIONS (5)
  - Ataxia [Unknown]
  - Coordination abnormal [Unknown]
  - Dysarthria [Unknown]
  - Progressive multifocal leukoencephalopathy [Unknown]
  - Vasculitis cerebral [Unknown]

NARRATIVE: CASE EVENT DATE: 201410
